FAERS Safety Report 15820276 (Version 1)
Quarter: 2019Q1

REPORT INFORMATION
  Report Type: Spontaneous
  Country: JP (occurrence: JP)
  Receive Date: 20190114
  Receipt Date: 20190114
  Transmission Date: 20190417
  Serious: Yes (Other)
  Sender: FDA-Public Use
  Company Number: PHHY2019JP001584

PATIENT
  Age: 21 Year
  Sex: Male

DRUGS (3)
  1. NEVANAC [Suspect]
     Active Substance: NEPAFENAC
     Indication: POSTOPERATIVE CARE
     Dosage: UNK
     Route: 061
  2. BERBESOLONE F [Suspect]
     Active Substance: BETAMETHASONE\NEOMYCIN
     Indication: POSTOPERATIVE CARE
     Route: 061
  3. CRAVIT [Suspect]
     Active Substance: LEVOFLOXACIN
     Indication: POSTOPERATIVE CARE
     Route: 061

REACTIONS (3)
  - Ulcerative keratitis [Unknown]
  - Corneal opacity [Unknown]
  - Corneal perforation [Unknown]
